FAERS Safety Report 19249577 (Version 1)
Quarter: 2021Q2

REPORT INFORMATION
  Report Type: Other
  Country: TN (occurrence: TN)
  Receive Date: 20210512
  Receipt Date: 20210512
  Transmission Date: 20210717
  Serious: Yes (Other)
  Sender: FDA-Public Use
  Company Number: TN-DEXPHARM-20210640

PATIENT
  Age: 40 Year

DRUGS (4)
  1. MEFENAMIC ACID. [Suspect]
     Active Substance: MEFENAMIC ACID
  2. PARACETAMOL [Concomitant]
     Active Substance: ACETAMINOPHEN
  3. LANSOPRAZOLE. [Concomitant]
     Active Substance: LANSOPRAZOLE
  4. DICLOFENAC [Suspect]
     Active Substance: DICLOFENAC

REACTIONS (1)
  - Cross sensitivity reaction [Unknown]
